FAERS Safety Report 9636751 (Version 2)
Quarter: 2013Q4

REPORT INFORMATION
  Report Type: Report from Study
  Country: US (occurrence: US)
  Receive Date: 20131022
  Receipt Date: 20131119
  Transmission Date: 20140711
  Serious: Yes (Other)
  Sender: FDA-Public Use
  Company Number: US-ROCHE-1290845

PATIENT
  Sex: Female
  Weight: 74.91 kg

DRUGS (2)
  1. XELODA [Suspect]
     Indication: BREAST CANCER METASTATIC
     Route: 048
     Dates: start: 20121201
  2. LAPATINIB [Concomitant]
     Route: 065
     Dates: start: 20121228, end: 20131023

REACTIONS (4)
  - Paralysis [Not Recovered/Not Resolved]
  - Pain in extremity [Not Recovered/Not Resolved]
  - Diarrhoea [Recovered/Resolved]
  - Skin fissures [Not Recovered/Not Resolved]
